FAERS Safety Report 18387211 (Version 5)
Quarter: 2021Q4

REPORT INFORMATION
  Report Type: Report from Study
  Country: BG (occurrence: BG)
  Receive Date: 20201015
  Receipt Date: 20211011
  Transmission Date: 20220303
  Serious: Yes (Hospitalization)
  Sender: FDA-Public Use
  Company Number: NVSC2020BG275612

PATIENT
  Age: 71 Year
  Sex: Female
  Weight: 68 kg

DRUGS (7)
  1. RIBOCICLIB [Suspect]
     Active Substance: RIBOCICLIB
     Indication: Breast cancer
     Dosage: 600 MG
     Route: 048
     Dates: start: 20200713
  2. LETROZOLE [Suspect]
     Active Substance: LETROZOLE
     Indication: Breast cancer
     Dosage: 2.5 MG, QD (DAILY)
     Route: 048
     Dates: start: 20200713
  3. VITAMIN C [Concomitant]
     Active Substance: ASCORBIC ACID
     Indication: Anaemia
     Dosage: UNK
     Route: 065
     Dates: start: 20200727, end: 20200731
  4. VITAMIN B COMPLEX [Concomitant]
     Active Substance: CYANOCOBALAMIN\DEXPANTHENOL\NIACINAMIDE\PYRIDOXINE HYDROCHLORIDE\RIBOFLAVIN 5^-PHOSPHATE SODIUM\THIA
     Indication: Thrombocytopenia
     Dosage: UNK
     Route: 065
     Dates: start: 20200727, end: 20200731
  5. ELITAN [Concomitant]
     Indication: Thrombocytopenia
     Dosage: UNK
     Route: 065
     Dates: start: 20200727, end: 20200731
  6. CEFOPERAZONE [Concomitant]
     Active Substance: CEFOPERAZONE
     Indication: Thrombocytopenia
     Dosage: UNK
     Route: 065
     Dates: start: 20200727, end: 20200731
  7. LOPERAMIDE [Concomitant]
     Active Substance: LOPERAMIDE
     Indication: Thrombocytopenia
     Dosage: UNK
     Route: 065
     Dates: start: 20200727, end: 20200731

REACTIONS (1)
  - Neutropenia [Recovered/Resolved]

NARRATIVE: CASE EVENT DATE: 20200727
